FAERS Safety Report 18701213 (Version 1)
Quarter: 2021Q1

REPORT INFORMATION
  Report Type: Spontaneous
  Country: US (occurrence: US)
  Receive Date: 20210105
  Receipt Date: 20210105
  Transmission Date: 20210419
  Serious: Yes (Hospitalization)
  Sender: FDA-Public Use
  Company Number: None

PATIENT
  Age: 42 Year
  Sex: Female
  Weight: 68 kg

DRUGS (4)
  1. CEFEPIME 2000 MG [Concomitant]
     Dates: start: 20210103, end: 20210103
  2. BAMLANIVIMAB. [Suspect]
     Active Substance: BAMLANIVIMAB
     Indication: COVID-19
     Dosage: ?          OTHER FREQUENCY:ONCE;?
     Route: 041
     Dates: start: 20210103, end: 20210103
  3. IBUPROFEN 400 MG [Concomitant]
     Active Substance: IBUPROFEN
     Dates: start: 20210103, end: 20210103
  4. VANCOMYCIN 1,500 MG [Concomitant]
     Dates: start: 20210103, end: 20210103

REACTIONS (1)
  - Febrile neutropenia [None]
